FAERS Safety Report 19031588 (Version 1)
Quarter: 2021Q1

REPORT INFORMATION
  Report Type: Spontaneous
  Country: GB (occurrence: GB)
  Receive Date: 20210319
  Receipt Date: 20210319
  Transmission Date: 20210420
  Serious: Yes (Hospitalization)
  Sender: FDA-Public Use
  Company Number: GB-009507513-2103GBR005047

PATIENT
  Age: 73 Year
  Sex: Male
  Weight: 76 kg

DRUGS (15)
  1. ENOXAPARIN SODIUM. [Concomitant]
     Active Substance: ENOXAPARIN SODIUM
  2. OXYCODONE [Concomitant]
     Active Substance: OXYCODONE
  3. CIPROFLOXACIN. [Suspect]
     Active Substance: CIPROFLOXACIN
     Indication: DEVICE RELATED INFECTION
     Dosage: UNK
  4. ACETAMINOPHEN. [Concomitant]
     Active Substance: ACETAMINOPHEN
  5. NAPROXEN. [Concomitant]
     Active Substance: NAPROXEN
  6. SOLIFENACIN SUCCINATE. [Concomitant]
     Active Substance: SOLIFENACIN SUCCINATE
  7. DAPTOMYCIN. [Suspect]
     Active Substance: DAPTOMYCIN
     Indication: DEVICE RELATED INFECTION
     Dosage: UNK
  8. PENTASA [Concomitant]
     Active Substance: MESALAMINE
  9. PHYLLOCONTIN [Concomitant]
     Active Substance: AMINOPHYLLINE
  10. TAMSULOSIN HYDROCHLORIDE. [Concomitant]
     Active Substance: TAMSULOSIN HYDROCHLORIDE
  11. NYSTATIN. [Concomitant]
     Active Substance: NYSTATIN
  12. OMEPRAZOLE. [Concomitant]
     Active Substance: OMEPRAZOLE
  13. PRAVASTATIN SODIUM. [Concomitant]
     Active Substance: PRAVASTATIN SODIUM
  14. GABAPENTIN. [Concomitant]
     Active Substance: GABAPENTIN
  15. VANCOMYCIN [Concomitant]
     Active Substance: VANCOMYCIN

REACTIONS (3)
  - Rash [Unknown]
  - Pyrexia [Unknown]
  - Malaise [Unknown]
